FAERS Safety Report 4511180-1 (Version None)
Quarter: 2004Q4

REPORT INFORMATION
  Report Type: 
  Country: None (occurrence: None)
  Receive Date: 20041128
  Receipt Date: 20040908
  Transmission Date: 20050328
  Serious: Yes (Other)
  Sender: FDA-Public Use
  Company Number: PHNU2004DE03170

PATIENT
  Age: 34 Year
  Sex: Male
  Weight: 65 kg

DRUGS (1)
  1. ELIDEL [Suspect]
     Indication: ECZEMA
     Dosage: 1 DF, BID
     Route: 061
     Dates: start: 20031230, end: 20040105

REACTIONS (9)
  - APPLICATION SITE DISCHARGE [None]
  - APPLICATION SITE ERYTHEMA [None]
  - APPLICATION SITE SWELLING [None]
  - ECZEMA [None]
  - ECZEMA IMPETIGINOUS [None]
  - ERYTHEMA [None]
  - STAPHYLOCOCCAL INFECTION [None]
  - SWELLING [None]
  - WOUND SECRETION [None]
